FAERS Safety Report 9062378 (Version 1)
Quarter: 2013Q1

REPORT INFORMATION
  Report Type: Spontaneous
  Country: AR (occurrence: AR)
  Receive Date: 20130129
  Receipt Date: 20130129
  Transmission Date: 20140127
  Serious: Yes (Other)
  Sender: FDA-Public Use
  Company Number: PHHY2013AR008121

PATIENT
  Sex: Female

DRUGS (1)
  1. STALEVO [Suspect]
     Indication: TREMOR
     Dosage: 1 DF, DAILY
     Route: 048
     Dates: start: 2010

REACTIONS (1)
  - Cataract [Not Recovered/Not Resolved]
